FAERS Safety Report 4784434-1 (Version None)
Quarter: 2005Q3

REPORT INFORMATION
  Report Type: 
  Country: None (occurrence: None)
  Receive Date: 20050929
  Receipt Date: 20050929
  Transmission Date: 20060218
  Serious: Yes (Other)
  Sender: FDA-Public Use
  Company Number: None

PATIENT
  Age: 44 Year
  Sex: Female
  Weight: 83 kg

DRUGS (4)
  1. PROMETHAZINE [Suspect]
     Indication: NAUSEA
     Dosage: 25 MG IV BOLUS   1 DOSE
     Route: 040
     Dates: start: 20020511, end: 20030511
  2. PROMETHAZINE [Suspect]
     Indication: PAIN MANAGEMENT
     Dosage: 25 MG IV BOLUS   1 DOSE
     Route: 040
     Dates: start: 20020511, end: 20030511
  3. MORPHINE [Suspect]
     Indication: NAUSEA
     Dosage: 8 MG   IV BOLUS
     Route: 040
  4. MORPHINE [Suspect]
     Indication: PAIN MANAGEMENT
     Dosage: 8 MG   IV BOLUS
     Route: 040

REACTIONS (3)
  - ERYTHEMA [None]
  - OEDEMA PERIPHERAL [None]
  - SKIN WARM [None]
